FAERS Safety Report 6114473-X (Version None)
Quarter: 2009Q1

REPORT INFORMATION
  Report Type: 
  Country: None (occurrence: None)
  Receive Date: 20090313
  Receipt Date: 20090303
  Transmission Date: 20090719
  Serious: Yes (Hospitalization)
  Sender: FDA-Public Use
  Company Number: US-AMGEN-US285225

PATIENT
  Sex: Male
  Weight: 68.6 kg

DRUGS (21)
  1. ROMIPLOSTIM [Suspect]
     Indication: IDIOPATHIC THROMBOCYTOPENIC PURPURA
     Route: 058
     Dates: start: 20080129, end: 20080205
  2. ROMIPLOSTIM [Suspect]
     Route: 058
     Dates: start: 20080219, end: 20080219
  3. ROMIPLOSTIM [Suspect]
     Route: 058
     Dates: start: 20080226, end: 20080226
  4. ROMIPLOSTIM [Suspect]
     Route: 058
     Dates: start: 20080303, end: 20080303
  5. ROMIPLOSTIM [Suspect]
     Route: 058
     Dates: start: 20080310, end: 20080416
  6. ROMIPLOSTIM [Suspect]
     Route: 058
     Dates: start: 20080422, end: 20080506
  7. ROMIPLOSTIM [Suspect]
     Route: 058
     Dates: start: 20080512, end: 20080512
  8. ROMIPLOSTIM [Suspect]
     Route: 058
     Dates: start: 20080520, end: 20080527
  9. ROMIPLOSTIM [Suspect]
     Route: 058
     Dates: start: 20080603, end: 20080603
  10. ROMIPLOSTIM [Suspect]
     Route: 058
     Dates: start: 20080609, end: 20080609
  11. ROMIPLOSTIM [Suspect]
     Route: 058
     Dates: start: 20080617, end: 20080702
  12. ROMIPLOSTIM [Suspect]
     Route: 058
     Dates: start: 20080708, end: 20080715
  13. ROMIPLOSTIM [Suspect]
     Route: 058
     Dates: start: 20080722, end: 20080812
  14. INSULIN NPH [Concomitant]
  15. LORAZEPAM [Concomitant]
     Route: 048
  16. VYTORIN [Concomitant]
     Route: 048
  17. PROPRANOLOL HCL W/HYDROCHLOROTHIAZIDE [Concomitant]
     Route: 048
  18. INSULIN [Concomitant]
  19. LISINOPRIL [Concomitant]
     Route: 048
  20. PREVACID [Concomitant]
     Route: 048
  21. NIFEDIPINE [Concomitant]
     Route: 048

REACTIONS (1)
  - EPISTAXIS [None]
